FAERS Safety Report 23142234 (Version 1)
Quarter: 2023Q4

REPORT INFORMATION
  Report Type: Spontaneous
  Country: IT (occurrence: IT)
  Receive Date: 20231103
  Receipt Date: 20231103
  Transmission Date: 20240110
  Serious: Yes (Hospitalization, Other)
  Sender: FDA-Public Use
  Company Number: None

PATIENT

DRUGS (1)
  1. FLUMAZENIL [Suspect]
     Active Substance: FLUMAZENIL
     Indication: Anaesthesia
     Dosage: 1 MG/ML
     Route: 042
     Dates: start: 20230824, end: 20230824

REACTIONS (3)
  - Restlessness [Recovered/Resolved]
  - Bradycardia [Recovered/Resolved]
  - Agitation [Recovered/Resolved]

NARRATIVE: CASE EVENT DATE: 20230824
